FAERS Safety Report 7444516-2 (Version None)
Quarter: 2011Q2

REPORT INFORMATION
  Report Type: 
  Country: None (occurrence: None)
  Receive Date: 20110427
  Receipt Date: 20110427
  Transmission Date: 20111010
  Serious: Yes (Other)
  Sender: FDA-Public Use
  Company Number: None

PATIENT
  Age: 17 Year
  Sex: Female
  Weight: 89.8122 kg

DRUGS (1)
  1. ACYCLOVIR [Suspect]
     Indication: GENITAL HERPES
     Dosage: 400 MG TID
     Dates: start: 20110301

REACTIONS (2)
  - RASH [None]
  - PRURITUS [None]
